FAERS Safety Report 8199647-9 (Version None)
Quarter: 2012Q1

REPORT INFORMATION
  Report Type: 
  Country: None (occurrence: None)
  Receive Date: 20120311
  Receipt Date: 20120305
  Transmission Date: 20120608
  Serious: Yes (Life-Threatening, Hospitalization)
  Sender: FDA-Public Use
  Company Number: FR-ASTRAZENECA-2012SE15298

PATIENT
  Age: 24380 Day
  Sex: Male

DRUGS (6)
  1. AMARYL [Suspect]
     Route: 048
     Dates: end: 20111201
  2. SUTENT [Suspect]
     Indication: RENAL CANCER
     Route: 048
     Dates: end: 20111209
  3. INNOHEP [Suspect]
     Route: 058
     Dates: end: 20111209
  4. NEXIUM [Suspect]
     Route: 048
     Dates: end: 20111201
  5. PROCORALAN [Suspect]
     Indication: MYOCARDIAL ISCHAEMIA
     Route: 048
     Dates: end: 20111209
  6. EZETIMIBE [Concomitant]

REACTIONS (1)
  - ISCHAEMIC STROKE [None]
